FAERS Safety Report 24620513 (Version 2)
Quarter: 2024Q4

REPORT INFORMATION
  Report Type: Spontaneous
  Country: AR (occurrence: AR)
  Receive Date: 20241114
  Receipt Date: 20241209
  Transmission Date: 20250115
  Serious: Yes (Hospitalization, Other)
  Sender: SANDOZ
  Company Number: AR-002147023-NVSC2021AR139322

PATIENT
  Age: 3 Year
  Sex: Male
  Weight: 17 kg

DRUGS (6)
  1. OMNITROPE [Suspect]
     Active Substance: SOMATROPIN
     Indication: Growth hormone deficiency
     Dosage: 0.3 MG, QD (10 MG/ML)
     Route: 058
     Dates: start: 20190829, end: 202103
  2. OMNITROPE [Suspect]
     Active Substance: SOMATROPIN
     Dosage: 0.4 MG, 7 TIMES A WEEK
     Route: 058
     Dates: start: 20190829
  3. OMNITROPE [Suspect]
     Active Substance: SOMATROPIN
     Dosage: 0.5 MG/7 TIMES A WEEK
     Route: 058
  4. OMNITROPE [Suspect]
     Active Substance: SOMATROPIN
     Dosage: UNK
     Route: 058
  5. HIDROTISONA [Concomitant]
     Indication: Product used for unknown indication
     Dosage: 7.5 MG
     Route: 065
  6. LEVOTHYROXINE [Concomitant]
     Active Substance: LEVOTHYROXINE
     Indication: Product used for unknown indication
     Dosage: 25 UC
     Route: 065

REACTIONS (10)
  - Respiratory disorder [Unknown]
  - Seizure [Unknown]
  - Leukaemia [Unknown]
  - Hypoglycaemia [Unknown]
  - Seizure [Recovered/Resolved]
  - Growth failure [Unknown]
  - Infection [Recovered/Resolved]
  - Headache [Unknown]
  - Abdominal pain upper [Unknown]
  - Expired product administered [Unknown]

NARRATIVE: CASE EVENT DATE: 20210131
